FAERS Safety Report 6527588-9 (Version None)
Quarter: 2010Q1

REPORT INFORMATION
  Report Type: 
  Country: None (occurrence: None)
  Receive Date: 20100105
  Receipt Date: 20091222
  Transmission Date: 20100710
  Serious: Yes (Other)
  Sender: FDA-Public Use
  Company Number: PHHY2009JP47972

PATIENT
  Age: 82 Year
  Sex: Male

DRUGS (3)
  1. TEGRETOL [Suspect]
     Indication: TRIGEMINAL NEURALGIA
     Dosage: 200 MG/DAY
     Route: 048
  2. RADIOTHERAPY [Concomitant]
     Dosage: UNK
  3. SEIJOKENTSU-TO [Concomitant]

REACTIONS (4)
  - BLOOD TEST ABNORMAL [None]
  - FEELING ABNORMAL [None]
  - IMMUNODEFICIENCY [None]
  - SOMNOLENCE [None]
